FAERS Safety Report 15414057 (Version 2)
Quarter: 2018Q4

REPORT INFORMATION
  Report Type: Report from Study
  Country: JP (occurrence: JP)
  Receive Date: 20180921
  Receipt Date: 20181025
  Transmission Date: 20190204
  Serious: Yes (Death, Hospitalization, Other)
  Sender: FDA-Public Use
  Company Number: JP-TEVA-2018-JP-956986

PATIENT
  Age: 9 Year
  Sex: Male

DRUGS (11)
  1. VORICONAZOLE. [Suspect]
     Active Substance: VORICONAZOLE
     Indication: ANTIFUNGAL PROPHYLAXIS
     Route: 048
  2. ARA-C [Suspect]
     Active Substance: CYTARABINE
     Indication: ACUTE MYELOID LEUKAEMIA
     Dosage: PART OF ECM CHEMOTHERAPY; ON DAYS 6-12; ADMINISTERED THROUGH CENTRAL VENOUS CATHETER
     Route: 042
  3. MITOXANTRONE [Suspect]
     Active Substance: MITOXANTRONE HYDROCHLORIDE
     Indication: ACUTE MYELOID LEUKAEMIA
     Dosage: PART OF ECM CHEMOTHERAPY; ON DAYS 6-10; ADMINISTERED THROUGH CENTRAL VENOUS CATHETER
     Route: 042
  4. IDARUBICIN [Suspect]
     Active Substance: IDARUBICIN
     Indication: ACUTE MYELOID LEUKAEMIA
     Dosage: PART OF HCEI CHEMOTHERAPY; ON DAYS 1; ADMINISTERED THROUGH CENTRAL VENOUS CATHETER
     Route: 042
  5. ETOPOSIDE. [Suspect]
     Active Substance: ETOPOSIDE
     Indication: ACUTE MYELOID LEUKAEMIA
     Dosage: PART OF ECM CHEMOTHERAPY; ON DAYS 1-5; ADMINISTERED THROUGH CENTRAL VENOUS CATHETER
     Route: 042
  6. IDARUBICIN [Suspect]
     Active Substance: IDARUBICIN
     Indication: ACUTE MYELOID LEUKAEMIA
     Dosage: PART OF IDA-FLAG CHEMOTHERAPY; ON DAYS 2-4; ADMINISTERED THROUGH CENTRAL VENOUS CATHETER
     Route: 042
  7. ETOPOSIDE. [Suspect]
     Active Substance: ETOPOSIDE
     Indication: ACUTE MYELOID LEUKAEMIA
     Dosage: PART OF HCEI CHEMOTHERAPY; ON DAYS 1-5; ADMINISTERED THROUGH CENTRAL VENOUS CATHETER
     Route: 042
  8. ARA-C [Suspect]
     Active Substance: CYTARABINE
     Indication: ACUTE MYELOID LEUKAEMIA
     Dosage: 2 G/M2 PART OF IDA-FLAG CHEMOTHERAPY; ON DAYS 1-4; ADMINISTERED THROUGH CENTRAL VENOUS CATHETER
     Route: 042
  9. TRIMETHOPRIM/SULFAMETHOXAZOLE [Concomitant]
     Active Substance: SULFAMETHOXAZOLE\TRIMETHOPRIM
     Indication: ANTIFUNGAL PROPHYLAXIS
     Route: 065
  10. ARA-C [Suspect]
     Active Substance: CYTARABINE
     Indication: ACUTE MYELOID LEUKAEMIA
     Dosage: 3 G/M2 X 2 PART OF HCEI CHEMOTHERAPY; ON DAYS 1-3; ADMINISTERED THROUGH CENTRAL VENOUS CATHETER
     Route: 042
  11. FLUDARABINE [Suspect]
     Active Substance: FLUDARABINE PHOSPHATE
     Indication: ACUTE MYELOID LEUKAEMIA
     Dosage: PART OF IDA-FLAG CHEMOTHERAPY; ON DAYS 1-4; ADMINISTERED THROUGH CENTRAL VENOUS CATHETER
     Route: 042

REACTIONS (5)
  - Mucormycosis [Fatal]
  - Pneumonia [Fatal]
  - Drug ineffective [Unknown]
  - Splenic infection fungal [Unknown]
  - Cerebral fungal infection [Fatal]
